FAERS Safety Report 4594981-3 (Version None)
Quarter: 2005Q1

REPORT INFORMATION
  Report Type: 
  Country: None (occurrence: None)
  Receive Date: 20050225
  Receipt Date: 20050209
  Transmission Date: 20050727
  Serious: Yes (Hospitalization)
  Sender: FDA-Public Use
  Company Number: 203894

PATIENT
  Sex: Male

DRUGS (1)
  1. AVONEX [Suspect]
     Indication: MULTIPLE SCLEROSIS
     Dosage: 30 UG; QW; IM
     Route: 030
     Dates: start: 19970426

REACTIONS (5)
  - COMA [None]
  - FEELING ABNORMAL [None]
  - HERPES VIRUS INFECTION [None]
  - HYPERHIDROSIS [None]
  - RETCHING [None]
